FAERS Safety Report 10137110 (Version 1)
Quarter: 2014Q2

REPORT INFORMATION
  Report Type: Spontaneous
  Country: US (occurrence: US)
  Receive Date: 20140429
  Receipt Date: 20140429
  Transmission Date: 20141212
  Serious: No
  Sender: FDA-Public Use
  Company Number: US-ABBVIE-14P-163-1222583-00

PATIENT
  Sex: Male
  Weight: 68.1 kg

DRUGS (20)
  1. ANDROGEL [Suspect]
     Indication: BLOOD TESTOSTERONE DECREASED
     Dates: start: 2012
  2. ANDROGEL [Suspect]
     Indication: BLOOD TESTOSTERONE DECREASED
     Dates: start: 2009
  3. ALPRAZOLAM [Concomitant]
     Indication: PANIC ATTACK
  4. AMBIEN [Concomitant]
     Indication: INSOMNIA
  5. DAPSONE [Concomitant]
     Indication: PROPHYLAXIS
  6. DAPSONE [Concomitant]
     Indication: PNEUMOCYSTIS JIROVECII PNEUMONIA
  7. ACYCLOVIR [Concomitant]
     Indication: PROPHYLAXIS
  8. ACYCLOVIR [Concomitant]
     Indication: HERPES VIRUS INFECTION
  9. PROZAC [Concomitant]
     Indication: DEPRESSION
  10. PROZAC [Concomitant]
     Indication: ANXIETY
  11. INTELENCE [Concomitant]
     Indication: HIV INFECTION
  12. LANTUS [Concomitant]
     Indication: DIABETES MELLITUS
  13. LOMOTIL [Concomitant]
     Indication: DIARRHOEA
  14. LOVAZA [Concomitant]
     Indication: BLOOD CHOLESTEROL INCREASED
  15. NORVIR [Concomitant]
     Indication: HIV INFECTION
  16. PREZISTA [Concomitant]
     Indication: HIV INFECTION
  17. TRAJENTA [Concomitant]
     Indication: DIABETES MELLITUS
  18. ANASTROZOLE [Concomitant]
     Indication: ANTIOESTROGEN THERAPY
  19. TRAZODONE [Concomitant]
     Indication: INSOMNIA
  20. ZIAGEN [Concomitant]
     Indication: HIV INFECTION

REACTIONS (3)
  - Retrograde ejaculation [Not Recovered/Not Resolved]
  - Prostatomegaly [Not Recovered/Not Resolved]
  - Pollakiuria [Not Recovered/Not Resolved]
